FAERS Safety Report 8419063-1 (Version None)
Quarter: 2012Q2

REPORT INFORMATION
  Report Type: 
  Country: None (occurrence: None)
  Receive Date: 20120607
  Receipt Date: 20120605
  Transmission Date: 20120825
  Serious: Yes (Other)
  Sender: FDA-Public Use
  Company Number: PHEH2007US12631

PATIENT
  Sex: Female
  Weight: 88.435 kg

DRUGS (75)
  1. RANITIDINE [Concomitant]
  2. MILK OF MAGNESIA TAB [Concomitant]
  3. NIFEDIPINE [Concomitant]
  4. ACETAMINOPHEN W/ CODEINE [Concomitant]
  5. MELPHALAN HYDROCHLORIDE [Concomitant]
  6. HYDROXYZINE [Concomitant]
  7. NORVASC [Concomitant]
  8. MS CONTIN [Concomitant]
  9. CALCIUM [Concomitant]
  10. PROMETHAZINE HYDROCHLORIDE [Concomitant]
     Dosage: 25 MG
  11. CIPROFLOXACIN HCL [Concomitant]
     Dosage: 500 MG
  12. LORTAB [Concomitant]
  13. LUMIGAN [Concomitant]
  14. PROTONIX [Concomitant]
  15. THALIDOMIDE [Concomitant]
     Dosage: 100 MG
     Dates: start: 20060119, end: 20071001
  16. SULAR [Concomitant]
  17. PENICILLIN VK [Concomitant]
     Dosage: 250 MG
  18. PETROLATUM [Concomitant]
     Route: 061
  19. INSULIN HUMAN INJECTION, ISOPHANE [Concomitant]
  20. PREDNISONE [Concomitant]
  21. ERYTHROMYCIN [Concomitant]
  22. NASONEX [Concomitant]
  23. CATAPRES-TTS-1 [Concomitant]
     Dosage: 2 DF, QW
     Route: 062
     Dates: start: 19951108
  24. CLONIDINE [Concomitant]
  25. PERCOCET [Concomitant]
  26. NITROFURAN [Concomitant]
     Dosage: 100 MG
  27. PAXIL [Concomitant]
     Dosage: UNK
  28. OXYBUTYNIN [Concomitant]
     Dosage: 4 MG / BID
     Route: 048
  29. SIMVASTATIN [Concomitant]
  30. TRIAMCINOLONE [Concomitant]
  31. NISOLDIPINE [Concomitant]
  32. AFRIN                              /00070002/ [Concomitant]
  33. PAROXETINE [Concomitant]
  34. DOCUSATE [Concomitant]
     Dosage: 100 MG
  35. ASPIRIN [Concomitant]
     Dosage: 325 MG
  36. GABAPENTIN [Concomitant]
  37. MORPHINE SULFATE [Concomitant]
  38. DEXAMETHASONE [Concomitant]
     Dosage: 4 MG
  39. UNASYN [Concomitant]
  40. PREMARIN [Concomitant]
     Dosage: UNK
  41. ALLEGRA [Concomitant]
  42. POTASSIUM [Concomitant]
  43. PIROXICAM [Concomitant]
  44. AREDIA [Suspect]
     Indication: MULTIPLE MYELOMA
     Dosage: 90 MG, QMO
  45. HYDROCODONE [Concomitant]
  46. DECADRON [Concomitant]
     Dosage: 40 MG
     Dates: start: 20060119
  47. CHEMOTHERAPEUTICS NOS [Concomitant]
  48. ACYCLOVIR [Concomitant]
     Dosage: 800 MG
  49. LORATADINE [Concomitant]
     Dosage: 10 MG
  50. HEPARIN-INJEKT [Concomitant]
  51. SODIUM CHLORIDE [Concomitant]
     Dosage: 1000 ML
  52. LEVAQUIN [Concomitant]
     Dosage: 250 MG, QD
  53. MACROBID [Concomitant]
     Dosage: 100 MG
  54. ZANTAC [Concomitant]
     Dosage: UNK
  55. NYSTATIN [Concomitant]
  56. TRAZODONE HCL [Concomitant]
  57. IRON [Concomitant]
  58. ZOMETA [Suspect]
     Indication: MULTIPLE MYELOMA
     Dosage: 4 MG, QMO
     Route: 042
     Dates: end: 20050601
  59. HYDRALAZINE HCL [Concomitant]
  60. POTASSIUM CHLORIDE [Concomitant]
  61. CHLORHEXIDINE GLUCONATE [Concomitant]
  62. SENNOSIDE [Concomitant]
     Dosage: 8.6 MG
  63. CLOTRIMAZOLE [Concomitant]
     Route: 061
  64. METRONIDAZOLE [Concomitant]
     Dosage: 250 MG
  65. POTASSIUM CHLORIDE [Concomitant]
     Dosage: UNK
  66. AMPICILLIN [Concomitant]
     Dosage: 500 MG / BID
     Route: 048
     Dates: start: 20050907
  67. DIFLUCAN [Concomitant]
     Dosage: SINGEL DOSE
     Dates: start: 20050907
  68. GLIPIZIDE [Concomitant]
     Dosage: UNK
  69. FLUCONAZOLE [Concomitant]
  70. AUGMENTIN '125' [Concomitant]
  71. PHENERGAN [Concomitant]
  72. ACETAMINOPHEN [Concomitant]
  73. HEMORRHOIDAL [Concomitant]
  74. MECLIZINE HYDROCHLORIDE [Concomitant]
  75. RHINOCORT [Concomitant]

REACTIONS (100)
  - MELAENA [None]
  - URINARY TRACT INFECTION [None]
  - TOOTH ABSCESS [None]
  - HAEMATEMESIS [None]
  - RECTAL HAEMORRHAGE [None]
  - BONE PAIN [None]
  - VAGINAL INFECTION [None]
  - ORTHOPNOEA [None]
  - MITRAL VALVE INCOMPETENCE [None]
  - EYE PAIN [None]
  - RHINORRHOEA [None]
  - CYSTITIS [None]
  - DYSAESTHESIA [None]
  - INTERVERTEBRAL DISC DEGENERATION [None]
  - GASTROINTESTINAL HAEMORRHAGE [None]
  - LIPOMA [None]
  - MULTIPLE MYELOMA [None]
  - LIFE EXPECTANCY SHORTENED [None]
  - ANHEDONIA [None]
  - GINGIVAL BLEEDING [None]
  - APHTHOUS STOMATITIS [None]
  - TOOTH DISORDER [None]
  - PLASMACYTOSIS [None]
  - PYREXIA [None]
  - ANAEMIA [None]
  - EXOSTOSIS [None]
  - DYSPNOEA [None]
  - CHRONIC SINUSITIS [None]
  - NIGHT SWEATS [None]
  - DIVERTICULUM [None]
  - EMOTIONAL DISTRESS [None]
  - PURULENCE [None]
  - HYPOKALAEMIA [None]
  - CATARACT [None]
  - ATELECTASIS [None]
  - AORTIC ARTERIOSCLEROSIS [None]
  - GASTROOESOPHAGEAL REFLUX DISEASE [None]
  - HAEMORRHOIDS [None]
  - HEADACHE [None]
  - SPONDYLOLISTHESIS [None]
  - BACK PAIN [None]
  - SCOLIOSIS [None]
  - ESCHERICHIA INFECTION [None]
  - TOOTHACHE [None]
  - PRESBYOPIA [None]
  - CARDIOMEGALY [None]
  - LYMPHADENOPATHY [None]
  - MASS [None]
  - OBESITY [None]
  - WALKING AID USER [None]
  - OEDEMA PERIPHERAL [None]
  - VOMITING [None]
  - EAR INFECTION [None]
  - HAEMATURIA [None]
  - HYPOPHAGIA [None]
  - SWELLING [None]
  - ORAL PAIN [None]
  - BONE DISORDER [None]
  - CHILLS [None]
  - ENTEROVESICAL FISTULA [None]
  - PLEURAL EFFUSION [None]
  - HYPERLIPIDAEMIA [None]
  - ASTHENIA [None]
  - CHEST PAIN [None]
  - PRURITUS [None]
  - PNEUMONIA [None]
  - AORTIC DISORDER [None]
  - PERICARDIAL EFFUSION [None]
  - INTERVERTEBRAL DISC SPACE NARROWING [None]
  - MOUTH ULCERATION [None]
  - DEFORMITY [None]
  - GINGIVAL DISORDER [None]
  - GINGIVITIS [None]
  - BIOPSY GINGIVAL [None]
  - DEPRESSION [None]
  - SINUS DISORDER [None]
  - GAIT DISTURBANCE [None]
  - SLEEP APNOEA SYNDROME [None]
  - SKIN CANDIDA [None]
  - BRONCHITIS [None]
  - SPINAL OSTEOARTHRITIS [None]
  - ANXIETY [None]
  - PAIN IN JAW [None]
  - GINGIVAL OEDEMA [None]
  - ERYTHEMA [None]
  - SKIN ODOUR ABNORMAL [None]
  - RENAL CYST [None]
  - INTESTINAL OBSTRUCTION [None]
  - PULMONARY VASCULAR DISORDER [None]
  - OSTEOARTHRITIS [None]
  - OROPHARYNGEAL PAIN [None]
  - SLEEP DISORDER [None]
  - AORTIC VALVE INCOMPETENCE [None]
  - BLADDER CANCER [None]
  - OSTEOPENIA [None]
  - OSTEONECROSIS OF JAW [None]
  - PAIN [None]
  - GLAUCOMA [None]
  - HEPATIC CYST [None]
  - ASTHMA [None]
